FAERS Safety Report 14347712 (Version 1)
Quarter: 2018Q1

REPORT INFORMATION
  Report Type: Spontaneous
  Country: GR (occurrence: GR)
  Receive Date: 20180103
  Receipt Date: 20180103
  Transmission Date: 20180509
  Serious: Yes (Death, Life-Threatening, Hospitalization, Other)
  Sender: FDA-Public Use
  Company Number: GR-CELGENEUS-GRC-20171207596

PATIENT
  Age: 72 Year
  Sex: Female
  Weight: 50 kg

DRUGS (23)
  1. VELCADE [Concomitant]
     Active Substance: BORTEZOMIB
     Dosage: 2.6 MILLIGRAM
     Route: 058
     Dates: start: 20170117, end: 20170211
  2. VELCADE [Concomitant]
     Active Substance: BORTEZOMIB
     Dosage: 2 MILLIGRAM
     Route: 058
     Dates: start: 20170516, end: 20170728
  3. DECADRON [Concomitant]
     Active Substance: DEXAMETHASONE
     Indication: PLASMA CELL MYELOMA
     Route: 048
     Dates: start: 20170313, end: 20170506
  4. ZOLEDRONIC ACID. [Concomitant]
     Active Substance: ZOLEDRONIC ACID
     Indication: PRODUCT USED FOR UNKNOWN INDICATION
     Route: 065
  5. AMLOPEN [Concomitant]
     Indication: HYPERTENSION
     Dosage: 5 MILLIGRAM
     Route: 048
     Dates: start: 201101
  6. APIXABAN [Concomitant]
     Active Substance: APIXABAN
     Indication: THROMBOSIS PROPHYLAXIS
     Route: 065
  7. POMALYST [Suspect]
     Active Substance: POMALIDOMIDE
     Indication: PLASMA CELL MYELOMA
     Route: 048
     Dates: start: 20171009, end: 20171205
  8. DECADRON [Concomitant]
     Active Substance: DEXAMETHASONE
     Route: 048
     Dates: start: 20171009
  9. DECADRON [Concomitant]
     Active Substance: DEXAMETHASONE
     Route: 048
     Dates: start: 20170117, end: 20170211
  10. REVLIMID [Suspect]
     Active Substance: LENALIDOMIDE
     Route: 048
     Dates: start: 20170313, end: 20170324
  11. REVLIMID [Suspect]
     Active Substance: LENALIDOMIDE
     Route: 048
     Dates: start: 20170801, end: 20170808
  12. VELCADE [Concomitant]
     Active Substance: BORTEZOMIB
     Route: 058
     Dates: start: 20171009
  13. IMBRUVICA [Concomitant]
     Active Substance: IBRUTINIB
     Indication: PLASMA CELL MYELOMA
     Dosage: 840 MILLIGRAM
     Route: 048
     Dates: start: 20170117, end: 20170211
  14. EPOETIN [Concomitant]
     Active Substance: ERYTHROPOIETIN
     Indication: PRODUCT USED FOR UNKNOWN INDICATION
     Route: 048
  15. VELCADE [Concomitant]
     Active Substance: BORTEZOMIB
     Indication: PLASMA CELL MYELOMA
     Route: 065
     Dates: start: 20131016, end: 20161108
  16. PREGABALIN. [Concomitant]
     Active Substance: PREGABALIN
     Indication: PERIPHERAL SENSORY NEUROPATHY
     Route: 048
  17. REVLIMID [Suspect]
     Active Substance: LENALIDOMIDE
     Indication: PLASMA CELL MYELOMA
     Route: 048
     Dates: start: 20131016, end: 20150901
  18. DECADRON [Concomitant]
     Active Substance: DEXAMETHASONE
     Route: 048
     Dates: start: 20170516, end: 20170728
  19. CYCLOPHOSPHAMIDE. [Concomitant]
     Active Substance: CYCLOPHOSPHAMIDE
     Indication: PLASMA CELL MYELOMA
     Route: 041
     Dates: start: 20170523, end: 20170728
  20. VITAMIN B COMPLEX [Concomitant]
     Active Substance: CYANOCOBALAMIN\DEXPANTHENOL\NIACINAMIDE\PYRIDOXINE HYDROCHLORIDE\RIBOFLAVIN 5^-PHOSPHATE SODIUM\THIAMINE HYDROCHLORIDE\VITAMIN B COMPLEX
     Indication: PERIPHERAL SENSORY NEUROPATHY
     Route: 065
  21. VELCADE [Concomitant]
     Active Substance: BORTEZOMIB
     Dosage: 4 MILLIGRAM
     Route: 058
     Dates: start: 20170313, end: 20170506
  22. EUTHYROX [Concomitant]
     Active Substance: LEVOTHYROXINE SODIUM
     Indication: AUTOIMMUNE THYROIDITIS
     Dosage: 88 MICROGRAM
     Route: 048
     Dates: start: 2011
  23. POMALYST [Suspect]
     Active Substance: POMALIDOMIDE
     Route: 048
     Dates: start: 20170912

REACTIONS (7)
  - Diastolic dysfunction [Recovered/Resolved]
  - Cough [Recovered/Resolved]
  - Hypoaesthesia [Not Recovered/Not Resolved]
  - Acute kidney injury [Recovered/Resolved]
  - Septic shock [Fatal]
  - Hyponatraemia [Recovered/Resolved]
  - Renal impairment [Recovered/Resolved]

NARRATIVE: CASE EVENT DATE: 20170321
